FAERS Safety Report 18677033 (Version 1)
Quarter: 2020Q4

REPORT INFORMATION
  Report Type: Spontaneous
  Country: US (occurrence: US)
  Receive Date: 20201229
  Receipt Date: 20201229
  Transmission Date: 20210114
  Serious: No
  Sender: FDA-Public Use
  Company Number: US-PFIZER INC-2020511425

PATIENT
  Age: 79 Year
  Sex: Male
  Weight: 104.33 kg

DRUGS (1)
  1. ATORVASTATIN CALCIUM. [Suspect]
     Active Substance: ATORVASTATIN CALCIUM
     Indication: ATRIOVENTRICULAR BLOCK
     Dosage: UNK

REACTIONS (3)
  - Myalgia [Unknown]
  - Pain in extremity [Unknown]
  - Drug ineffective [Unknown]
